FAERS Safety Report 5678164-1 (Version None)
Quarter: 2008Q1

REPORT INFORMATION
  Report Type: 
  Country: None (occurrence: None)
  Receive Date: 20080319
  Receipt Date: 20080314
  Transmission Date: 20080703
  Serious: Yes (Death, Hospitalization)
  Sender: FDA-Public Use
  Company Number: GRT 2007-12945

PATIENT
  Age: 87 Year
  Sex: Male
  Weight: 0.065 kg

DRUGS (15)
  1. LIDOCAINE [Suspect]
     Indication: POST HERPETIC NEURALGIA
     Dosage: 1 PATCH A DAY
     Dates: start: 20070505
  2. ALENDRONIC ACID [Concomitant]
  3. ASPIRIN [Concomitant]
  4. CLOPIDOGREL [Concomitant]
  5. DILTIAZEM [Concomitant]
  6. FERROUS SULFATE TAB [Concomitant]
  7. OMEPRAZOLE [Concomitant]
  8. SIMVASTATIN [Concomitant]
  9. VALSARTAN [Concomitant]
  10. ZOPICLONE [Concomitant]
  11. LACTULOSE [Concomitant]
  12. IMODIUM [Concomitant]
  13. TAMSULOSIN HCL [Concomitant]
  14. TEMZEPAM [Concomitant]
  15. CO-DYDRAMOL [Concomitant]

REACTIONS (4)
  - COLORECTAL CANCER METASTATIC [None]
  - GASTRITIS [None]
  - HAEMATURIA [None]
  - RENAL FAILURE [None]
